FAERS Safety Report 17030397 (Version 1)
Quarter: 2019Q4

REPORT INFORMATION
  Report Type: Spontaneous
  Country: US (occurrence: US)
  Receive Date: 20191011
  Receipt Date: 20191011
  Transmission Date: 20200122
  Serious: Yes (Hospitalization)
  Sender: FDA-Public Use
  Company Number: None

PATIENT
  Sex: Female

DRUGS (9)
  1. FOLIC ACID. [Concomitant]
     Active Substance: FOLIC ACID
  2. MELOXICAM. [Concomitant]
     Active Substance: MELOXICAM
  3. XELJANZ [Suspect]
     Active Substance: TOFACITINIB CITRATE
     Indication: RHEUMATOID ARTHRITIS
     Route: 048
     Dates: start: 20190513
  4. PRENATAL [Concomitant]
     Active Substance: VITAMINS
  5. PAROXETINE. [Concomitant]
     Active Substance: PAROXETINE
  6. TIZANIDINE. [Concomitant]
     Active Substance: TIZANIDINE
  7. METHOTREXATE. [Concomitant]
     Active Substance: METHOTREXATE
  8. XANAX [Concomitant]
     Active Substance: ALPRAZOLAM
  9. OMEPRAZOLE. [Concomitant]
     Active Substance: OMEPRAZOLE

REACTIONS (2)
  - Road traffic accident [None]
  - Rheumatoid arthritis [None]
